FAERS Safety Report 19786655 (Version 1)
Quarter: 2021Q3

REPORT INFORMATION
  Report Type: Spontaneous
  Country: IT (occurrence: IT)
  Receive Date: 20210903
  Receipt Date: 20210903
  Transmission Date: 20211014
  Serious: Yes (Death, Other)
  Sender: FDA-Public Use
  Company Number: IT-MYLANLABS-2021M1057491

PATIENT
  Age: 56 Year
  Sex: Female

DRUGS (1)
  1. LEVETIRACETAM. [Suspect]
     Active Substance: LEVETIRACETAM
     Indication: PARTIAL SEIZURES
     Dosage: 2000 MILLIGRAM PER DAY

REACTIONS (7)
  - Partial seizures [Unknown]
  - Ataxia [Unknown]
  - Encephalopathy [Unknown]
  - Blindness cortical [Fatal]
  - Dementia [Fatal]
  - Diabetes mellitus [Fatal]
  - Dystonia [Unknown]
